FAERS Safety Report 12080494 (Version 1)
Quarter: 2016Q1

REPORT INFORMATION
  Report Type: Spontaneous
  Country: None (occurrence: None)
  Receive Date: 20160212
  Receipt Date: 20160212
  Transmission Date: 20160526
  Serious: No
  Sender: FDA-Public Use
  Company Number: None

PATIENT
  Age: 57 Year
  Sex: Male

DRUGS (6)
  1. OPANA [Suspect]
     Active Substance: OXYMORPHONE HYDROCHLORIDE
  2. HUMULIN NOS [Suspect]
     Active Substance: INSULIN HUMAN
  3. HUMULIN R U-500 [Suspect]
     Active Substance: INSULIN HUMAN
  4. HUMALOG [Suspect]
     Active Substance: INSULIN LISPRO
  5. TOUJEO [Suspect]
     Active Substance: INSULIN GLARGINE
  6. METFORMIN [Suspect]
     Active Substance: METFORMIN HYDROCHLORIDE

REACTIONS (5)
  - Asthenia [None]
  - Nausea [None]
  - Psoriasis [None]
  - Intervertebral disc disorder [None]
  - Blood glucose decreased [None]
